FAERS Safety Report 11047250 (Version 1)
Quarter: 2015Q2

REPORT INFORMATION
  Report Type: Spontaneous
  Country: IT (occurrence: None)
  Receive Date: 20150416
  Receipt Date: 20150416
  Transmission Date: 20150821
  Serious: Yes (Hospitalization)
  Sender: FDA-Public Use
  Company Number: DEP_02668_2015

PATIENT
  Age: 52 Year
  Sex: Male

DRUGS (2)
  1. VOLTFAST [Suspect]
     Active Substance: DICLOFENAC POTASSIUM
     Indication: BACK PAIN
     Dosage: ONCE/SINGLE DOSE ORAL)
     Route: 048
     Dates: start: 20150331, end: 20150331
  2. DAFLON/01026201/ [Concomitant]

REACTIONS (1)
  - Drug hypersensitivity [None]

NARRATIVE: CASE EVENT DATE: 20150331
